FAERS Safety Report 10977168 (Version 1)
Quarter: 2015Q1

REPORT INFORMATION
  Report Type: Spontaneous
  Country: JP (occurrence: None)
  Receive Date: 20150330
  Receipt Date: 20150330
  Transmission Date: 20150721
  Serious: Yes (Death)
  Sender: FDA-Public Use
  Company Number: FK201501495

PATIENT

DRUGS (2)
  1. GIMERACIL W/OTERACIL POTASSIUM/TEGAFUR (GIMERACIL W/OTERACIL POTTASIUM/TEGAFUR) [Suspect]
     Active Substance: GIMERACIL\OTERACIL\TEGAFUR
     Indication: PANCREATIC CARCINOMA
     Dosage: 60 MG/M2, ON DAY 1-14 AND DAY 22-25
  2. GEMCITABINE (MANUFACTURER UNKNOWN) (GEMCITABINE) (GEMCITABINE) [Suspect]
     Active Substance: GEMCITABINE HYDROCHLORIDE
     Indication: PANCREATIC CARCINOMA
     Dosage: ON DAY 1, 8, 22, AND 29, DRIP INFUSION

REACTIONS (1)
  - Death [None]
